FAERS Safety Report 6756421-5 (Version None)
Quarter: 2010Q2

REPORT INFORMATION
  Report Type: 
  Country: None (occurrence: None)
  Receive Date: 20100604
  Receipt Date: 20100601
  Transmission Date: 20101027
  Serious: Yes (Hospitalization)
  Sender: FDA-Public Use
  Company Number: A0793366A

PATIENT
  Age: 53 Year
  Sex: Male
  Weight: 99.5 kg

DRUGS (9)
  1. AVANDIA [Suspect]
     Indication: DIABETES MELLITUS
     Dosage: 4MG TWICE PER DAY
     Route: 048
     Dates: start: 19991118, end: 20060801
  2. HYZAAR [Concomitant]
  3. ZESTRIL [Concomitant]
  4. PROCARDIA [Concomitant]
  5. AMARYL [Concomitant]
  6. GLUCOPHAGE [Concomitant]
  7. TRICOR [Concomitant]
  8. FLOMAX [Concomitant]
  9. NEURONTIN [Concomitant]

REACTIONS (4)
  - CEREBROVASCULAR ACCIDENT [None]
  - CORONARY ARTERY DISEASE [None]
  - LACUNAR INFARCTION [None]
  - TRANSIENT ISCHAEMIC ATTACK [None]
